FAERS Safety Report 24533344 (Version 2)
Quarter: 2025Q2

REPORT INFORMATION
  Report Type: Spontaneous
  Country: US (occurrence: US)
  Receive Date: 20241022
  Receipt Date: 20250505
  Transmission Date: 20250717
  Serious: Yes (Hospitalization, Other)
  Sender: SERVIER
  Company Number: US-SERVIER-S24013171

PATIENT

DRUGS (5)
  1. ASPARLAS [Suspect]
     Active Substance: CALASPARGASE PEGOL-MKNL
     Indication: Leukaemia
     Route: 042
     Dates: start: 20240628, end: 20240813
  2. VINCRISTINE [Concomitant]
     Active Substance: VINCRISTINE
     Indication: Leukaemia
     Route: 042
  3. ZOFRAN [Concomitant]
     Active Substance: ONDANSETRON HYDROCHLORIDE
     Indication: Premedication
     Route: 065
  4. BENADRYL [Concomitant]
     Active Substance: DIPHENHYDRAMINE HYDROCHLORIDE
     Indication: Premedication
     Route: 065
  5. PEPCID [Concomitant]
     Active Substance: FAMOTIDINE
     Indication: Premedication
     Route: 065

REACTIONS (1)
  - Anaphylactic reaction [Recovered/Resolved]

NARRATIVE: CASE EVENT DATE: 20240813
